FAERS Safety Report 18704521 (Version 1)
Quarter: 2021Q1

REPORT INFORMATION
  Report Type: Spontaneous
  Country: EE (occurrence: EE)
  Receive Date: 20210105
  Receipt Date: 20210105
  Transmission Date: 20210419
  Serious: Yes (Hospitalization)
  Sender: FDA-Public Use
  Company Number: EE-JNJFOC-20201256206

PATIENT
  Age: 38 Year
  Sex: Male
  Weight: 50 kg

DRUGS (1)
  1. REZOLSTA [Suspect]
     Active Substance: COBICISTAT\DARUNAVIR ETHANOLATE
     Indication: HIV INFECTION
     Dosage: COBICISTAT: 150MG; DARUNAVIR: 800MG
     Route: 048
     Dates: start: 20200903, end: 20201204

REACTIONS (1)
  - Pancreatitis [Recovered/Resolved with Sequelae]

NARRATIVE: CASE EVENT DATE: 20201127
